FAERS Safety Report 6371355-6 (Version None)
Quarter: 2009Q3

REPORT INFORMATION
  Report Type: 
  Country: None (occurrence: None)
  Receive Date: 20090921
  Receipt Date: 20090921
  Transmission Date: 20100115
  Serious: Yes (Other)
  Sender: FDA-Public Use
  Company Number: None

PATIENT
  Sex: Female
  Weight: 54.5 kg

DRUGS (1)
  1. CREST PRO HEALTH MOUTH RINSE CREST [Suspect]
     Indication: DENTAL DISORDER PROPHYLAXIS
     Dosage: 20 ML 2-4X PER DAY ORAL
     Route: 048
     Dates: start: 20090901, end: 20090917

REACTIONS (1)
  - TOOTH DISCOLOURATION [None]
